FAERS Safety Report 12314086 (Version 3)
Quarter: 2016Q3

REPORT INFORMATION
  Report Type: Spontaneous
  Country: US (occurrence: US)
  Receive Date: 20160428
  Receipt Date: 20160707
  Transmission Date: 20161109
  Serious: No
  Sender: FDA-Public Use
  Company Number: US-009507513-1604USA016841

PATIENT
  Age: 22 Year
  Sex: Female
  Weight: 97.96 kg

DRUGS (1)
  1. NEXPLANON [Suspect]
     Active Substance: ETONOGESTREL
     Indication: CONTRACEPTION
     Dosage: 68 MG/ ONE ROD PER 3 YEARS
     Route: 059
     Dates: start: 20160316

REACTIONS (4)
  - Device difficult to use [Not Recovered/Not Resolved]
  - Device kink [Not Recovered/Not Resolved]
  - Medical device discomfort [Unknown]
  - Implant site pain [Unknown]

NARRATIVE: CASE EVENT DATE: 2016
